FAERS Safety Report 9329274 (Version 1)
Quarter: 2013Q2

REPORT INFORMATION
  Report Type: Spontaneous
  Country: US (occurrence: US)
  Receive Date: 20130604
  Receipt Date: 20130604
  Transmission Date: 20140414
  Serious: No
  Sender: FDA-Public Use
  Company Number: US-SANOFI-AVENTIS-2013SA025033

PATIENT
  Age: 76 Year
  Sex: Female

DRUGS (3)
  1. LANTUS SOLOSTAR [Suspect]
     Indication: DIABETES MELLITUS
     Dosage: 10 UNITS IN MORNING?12 OR 14 UNITS AT NIGHT
     Route: 051
  2. LANTUS SOLOSTAR [Suspect]
     Indication: DIABETES MELLITUS
     Dosage: 22 OR 24 UNITS
     Route: 051
  3. SOLOSTAR [Suspect]
     Dates: start: 201210

REACTIONS (3)
  - Skin discolouration [Unknown]
  - Rash erythematous [Not Recovered/Not Resolved]
  - Granuloma annulare [Not Recovered/Not Resolved]
